FAERS Safety Report 12655986 (Version 1)
Quarter: 2016Q3

REPORT INFORMATION
  Report Type: Spontaneous
  Country: US (occurrence: US)
  Receive Date: 20160816
  Receipt Date: 20160816
  Transmission Date: 20161109
  Serious: No
  Sender: FDA-Public Use
  Company Number: US-ROCHE-1610921

PATIENT
  Age: 46 Year
  Sex: Male
  Weight: 95.5 kg

DRUGS (2)
  1. MIRCERA [Suspect]
     Active Substance: METHOXY POLYETHYLENE GLYCOL-EPOETIN BETA
     Indication: PRODUCT USED FOR UNKNOWN INDICATION
     Dosage: TOTAL OF DOSES ADMINISTERED 3
     Route: 065
  2. HECTOROL [Concomitant]
     Active Substance: DOXERCALCIFEROL
     Route: 065

REACTIONS (2)
  - Chest pain [Unknown]
  - Back pain [Unknown]

NARRATIVE: CASE EVENT DATE: 20150708
